FAERS Safety Report 7496514-0 (Version None)
Quarter: 2011Q2

REPORT INFORMATION
  Report Type: 
  Country: None (occurrence: None)
  Receive Date: 20110523
  Receipt Date: 20110512
  Transmission Date: 20111010
  Serious: Yes (Hospitalization, Disabling)
  Sender: FDA-Public Use
  Company Number: US-AMGEN-USACT2011019512

PATIENT
  Age: 74 Year
  Sex: Female

DRUGS (18)
  1. OSCAL [Concomitant]
     Dosage: 1000 MG, QD
  2. VITAMIN D [Concomitant]
     Dosage: 400 IU, QD
  3. SPIRIVA [Concomitant]
     Dosage: 18 A?G, QD
  4. CHANTIX [Concomitant]
     Dosage: 0.5 MG, BID
  5. SENOKOT [Concomitant]
  6. DENOSUMAB [Suspect]
     Indication: OSTEOPOROSIS POSTMENOPAUSAL
     Dosage: 60 MG, Q6MO
     Route: 058
     Dates: start: 20061206, end: 20100614
  7. FERROUS SULFATE TAB [Concomitant]
     Dosage: 27 MG, QD
  8. HYDRALAZINE HCL [Concomitant]
     Dosage: 10 MG, Q6H
  9. PERCOCET [Concomitant]
     Dosage: 325 MG, PRN
     Route: 048
  10. FLUTICASONE PROPIONATE [Concomitant]
     Dosage: 50 A?G, PRN
     Route: 055
  11. ESTER C [Concomitant]
     Dosage: 500 MG, QD
  12. ALLEGRA [Concomitant]
     Dosage: 180 MG, QD
  13. DIFLUCAN [Concomitant]
  14. PRILOSEC [Concomitant]
     Dosage: 20 MG, UNK
  15. VITAMIN B COMPLEX CAP [Concomitant]
  16. CHERATUSSIN AC [Concomitant]
     Dosage: UNK UNK, PRN
  17. LISINOPRIL [Concomitant]
     Dosage: 10 MG, BID
     Dates: start: 20110301
  18. ATIVAN [Concomitant]

REACTIONS (1)
  - SPINAL COMPRESSION FRACTURE [None]
